FAERS Safety Report 10334599 (Version 2)
Quarter: 2014Q3

REPORT INFORMATION
  Report Type: Report from Study
  Country: TW (occurrence: TW)
  Receive Date: 20140723
  Receipt Date: 20140723
  Transmission Date: 20150326
  Serious: Yes (Other)
  Sender: FDA-Public Use
  Company Number: TW-ROCHE-1430926

PATIENT

DRUGS (2)
  1. CAPECITABINE [Suspect]
     Active Substance: CAPECITABINE
     Indication: GASTRIC CANCER
     Dosage: FOR 10 DAYS EVERY 2 WEEKS
     Route: 065
  2. OXALIPLATIN. [Suspect]
     Active Substance: OXALIPLATIN
     Indication: GASTRIC CANCER
     Dosage: DAY 1
     Route: 065

REACTIONS (16)
  - Abdominal pain [Unknown]
  - Hypoaesthesia [Unknown]
  - Mucosal inflammation [Unknown]
  - Leukopenia [Unknown]
  - Vomiting [Unknown]
  - Anaemia [Unknown]
  - Neutropenia [Unknown]
  - Infection [Unknown]
  - Decreased appetite [Unknown]
  - Nausea [Unknown]
  - Palmar-plantar erythrodysaesthesia syndrome [Unknown]
  - Neuropathy peripheral [Unknown]
  - Renal failure [Unknown]
  - Diarrhoea [Unknown]
  - Thrombocytopenia [Unknown]
  - Fatigue [Unknown]
